FAERS Safety Report 9498346 (Version 2)
Quarter: 2013Q3

REPORT INFORMATION
  Report Type: Spontaneous
  Country: US (occurrence: US)
  Receive Date: 20130904
  Receipt Date: 20130911
  Transmission Date: 20140515
  Serious: No
  Sender: FDA-Public Use
  Company Number: US-BAYER-2013-101856

PATIENT
  Age: 46 Year
  Sex: Male

DRUGS (6)
  1. LEVITRA [Suspect]
     Indication: ERECTILE DYSFUNCTION
     Dosage: 20 MG, QD
     Route: 048
     Dates: start: 2011, end: 20130707
  2. PHENOBARBITAL [Concomitant]
  3. PREVACID [Concomitant]
  4. ALBUTEROL SULFATE [Concomitant]
  5. TYLENOL W/CODEINE NO. 3 [Concomitant]
     Indication: PAIN
  6. SYMBICORT [Concomitant]

REACTIONS (1)
  - Drug ineffective [Recovered/Resolved]
